FAERS Safety Report 14584644 (Version 1)
Quarter: 2018Q1

REPORT INFORMATION
  Report Type: Spontaneous
  Country: US (occurrence: US)
  Receive Date: 20180301
  Receipt Date: 20180301
  Transmission Date: 20180509
  Serious: No
  Sender: FDA-Public Use
  Company Number: US-AJANTA PHARMA USA INC.-2042761

PATIENT
  Sex: Female

DRUGS (4)
  1. DOANS PAIN RELIEVING [Concomitant]
     Active Substance: LIDOCAINE\MENTHOL
  2. MULTIVITAMIN [Concomitant]
     Active Substance: VITAMINS
  3. MONTELUKAST SODIUM. [Suspect]
     Active Substance: MONTELUKAST SODIUM
     Indication: ASTHMA
  4. ALBUTEROL. [Concomitant]
     Active Substance: ALBUTEROL

REACTIONS (1)
  - Drug effect incomplete [Unknown]

NARRATIVE: CASE EVENT DATE: 201710
